FAERS Safety Report 26169498 (Version 2)
Quarter: 2025Q4

REPORT INFORMATION
  Report Type: Spontaneous
  Country: JP (occurrence: JP)
  Receive Date: 20251217
  Receipt Date: 20251229
  Transmission Date: 20260118
  Serious: Yes (Death, Hospitalization)
  Sender: PFIZER
  Company Number: JP-PFIZER INC-202500241820

PATIENT
  Age: 82 Year
  Sex: Male

DRUGS (1)
  1. TAFAMIDIS [Suspect]
     Active Substance: TAFAMIDIS
     Indication: Cardiac amyloidosis
     Dosage: 61 MG
     Route: 048
     Dates: start: 20251201, end: 202512

REACTIONS (2)
  - Dehydration [Fatal]
  - Cardiac amyloidosis [Fatal]

NARRATIVE: CASE EVENT DATE: 20251201
